FAERS Safety Report 5517409-5 (Version None)
Quarter: 2007Q4

REPORT INFORMATION
  Report Type: 
  Country: None (occurrence: None)
  Receive Date: 20071114
  Receipt Date: 20071031
  Transmission Date: 20080405
  Serious: Yes (Other)
  Sender: FDA-Public Use
  Company Number: GB-RANBAXY-2007RR-11197

PATIENT

DRUGS (11)
  1. AMOXICILLIN TRIHYDRATE FILM COATED TABLET 750MG [Suspect]
     Dosage: UNK
     Route: 048
     Dates: start: 20070726, end: 20070802
  2. CLAVULANIC ACID [Suspect]
     Indication: WOUND INFECTION
     Dosage: UNK
     Route: 048
     Dates: start: 20070726, end: 20070802
  3. METRONIDAZOLE TABLETS 400MG [Suspect]
     Indication: WOUND INFECTION
     Dosage: 400 MG, TID
     Route: 048
     Dates: start: 20070726, end: 20070802
  4. ALLOPURINOL [Concomitant]
     Dosage: 300 MG, QD
  5. CORACTEN XL [Concomitant]
     Dosage: 60 MG, QD
  6. DIGOXIN [Concomitant]
     Dosage: 250 UG, QD
  7. GAVISCON [Concomitant]
     Dosage: 10 ML, PRN
  8. IRBESARTAN [Concomitant]
     Dosage: 150 MG, QD
  9. PARACETAMOL CAPSULES 500MG [Concomitant]
     Dosage: 500 MG, PRN
  10. SIMVASTATIN 10MG TABLETS [Concomitant]
     Dosage: 40 MG, QD
  11. WARFARIN SODIUM [Concomitant]

REACTIONS (5)
  - ABDOMINAL PAIN [None]
  - HEPATITIS [None]
  - LIVER FUNCTION TEST ABNORMAL [None]
  - MALAISE [None]
  - VOMITING [None]
